FAERS Safety Report 18718594 (Version 1)
Quarter: 2021Q1

REPORT INFORMATION
  Report Type: Spontaneous
  Country: CN (occurrence: CN)
  Receive Date: 20210108
  Receipt Date: 20210108
  Transmission Date: 20210419
  Serious: Yes (Other)
  Sender: FDA-Public Use
  Company Number: CN-JNJFOC-20210110819

PATIENT
  Age: 76 Year
  Sex: Female
  Weight: 45 kg

DRUGS (6)
  1. RIVAROXABAN [Suspect]
     Active Substance: RIVAROXABAN
     Indication: DEEP VEIN THROMBOSIS
     Dosage: 10 MG, QD
     Route: 048
     Dates: start: 20210102, end: 20210103
  2. IBUPROFEN AND CODEINE PHOSPHATE [Concomitant]
     Active Substance: CODEINE PHOSPHATE\IBUPROFEN
  3. AMLODIPINE BESYLATE. [Concomitant]
     Active Substance: AMLODIPINE BESYLATE
  4. CLOPIDOGREL HYDROGEN SULFATE [Concomitant]
     Active Substance: CLOPIDOGREL BISULFATE
  5. XUE SHUAN TONG [Concomitant]
     Active Substance: HERBALS\PANAX NOTOGINSENG ROOT EXTRACT
  6. ATORVASTATIN CALCIUM. [Concomitant]
     Active Substance: ATORVASTATIN CALCIUM

REACTIONS (9)
  - Skin warm [Unknown]
  - Pyrexia [Recovering/Resolving]
  - Rash erythematous [Unknown]
  - Cellulitis [Unknown]
  - Product monitoring error [Unknown]
  - Product prescribing issue [Unknown]
  - Incorrect dose administered [Unknown]
  - Rash [Unknown]
  - Contraindicated product administered [Unknown]

NARRATIVE: CASE EVENT DATE: 20210102
